FAERS Safety Report 7219437-0 (Version None)
Quarter: 2011Q1

REPORT INFORMATION
  Report Type: 
  Country: None (occurrence: None)
  Receive Date: 20110111
  Receipt Date: 20110106
  Transmission Date: 20110831
  Serious: Yes (Hospitalization, Other)
  Sender: FDA-Public Use
  Company Number: CA-US-EMD SERONO, INC.-230621J08CAN

PATIENT
  Sex: Male

DRUGS (16)
  1. REBIF [Suspect]
     Indication: RELAPSING-REMITTING MULTIPLE SCLEROSIS
     Dates: start: 20000117, end: 20080601
  2. CITALOPRAM [Concomitant]
  3. AMITRIPTYLINE [Concomitant]
  4. METOPROLOL SUCCINATE [Concomitant]
  5. REBIF [Suspect]
     Dates: start: 20080728
  6. DOMPERIDONE [Concomitant]
  7. PANTOLOC [Concomitant]
  8. BACLOFEN [Concomitant]
  9. GABAPENTIN [Concomitant]
  10. CELEBREX [Concomitant]
  11. CRESTOR [Concomitant]
  12. CHOLESTYRAMINE [Concomitant]
  13. PLAVIX [Concomitant]
  14. TAMSULOSIN [Concomitant]
  15. DETROL [Concomitant]
  16. RAMIPRIL [Concomitant]

REACTIONS (9)
  - ARTHRITIS [None]
  - MUSCLE SPASMS [None]
  - CHOLELITHIASIS [None]
  - URINARY INCONTINENCE [None]
  - CYSTITIS [None]
  - FATIGUE [None]
  - MULTIPLE SCLEROSIS RELAPSE [None]
  - MUSCULAR WEAKNESS [None]
  - CARDIAC DISORDER [None]
